FAERS Safety Report 6898250-8 (Version None)
Quarter: 2010Q3

REPORT INFORMATION
  Report Type: 
  Country: None (occurrence: None)
  Receive Date: 20100802
  Receipt Date: 20070926
  Transmission Date: 20110219
  Serious: No
  Sender: FDA-Public Use
  Company Number: US-PFIZER INC-2007081817

PATIENT
  Sex: Female
  Weight: 65.8 kg

DRUGS (3)
  1. LYRICA [Suspect]
     Indication: ROTATOR CUFF SYNDROME
     Route: 048
     Dates: start: 20070901, end: 20070926
  2. CHANTIX [Concomitant]
  3. HYDROCODONE BITARTRATE [Concomitant]

REACTIONS (4)
  - HYPERSENSITIVITY [None]
  - PARAESTHESIA [None]
  - PRURITUS [None]
  - RASH [None]
